FAERS Safety Report 19913443 (Version 1)
Quarter: 2021Q4

REPORT INFORMATION
  Report Type: Report from Study
  Country: GB (occurrence: GB)
  Receive Date: 20211004
  Receipt Date: 20211004
  Transmission Date: 20220303
  Serious: Yes (Other)
  Sender: FDA-Public Use
  Company Number: GB-SAMSUNG BIOEPIS-SB-2021-23322

PATIENT
  Sex: Female

DRUGS (4)
  1. IMRALDI [Suspect]
     Active Substance: ADALIMUMAB
     Indication: Colitis ulcerative
     Dosage: WEEK 0
     Route: 058
     Dates: start: 20210910
  2. IMRALDI [Suspect]
     Active Substance: ADALIMUMAB
     Dosage: WEEK 2
     Route: 058
  3. IMRALDI [Suspect]
     Active Substance: ADALIMUMAB
     Dosage: WEEK 4
     Route: 058
  4. IMRALDI [Suspect]
     Active Substance: ADALIMUMAB
     Route: 058

REACTIONS (2)
  - Loss of consciousness [Recovered/Resolved]
  - Injection site pain [Unknown]
